FAERS Safety Report 8322702-7 (Version None)
Quarter: 2012Q2

REPORT INFORMATION
  Report Type: 
  Country: None (occurrence: None)
  Receive Date: 20120430
  Receipt Date: 20120418
  Transmission Date: 20120825
  Serious: Yes (Life-Threatening, Hospitalization)
  Sender: FDA-Public Use
  Company Number: FR-UCBSA-051156

PATIENT
  Age: 63 Year
  Sex: Female
  Weight: 78 kg

DRUGS (2)
  1. KEPPRA [Suspect]
     Indication: EPILEPSY
     Route: 048
     Dates: start: 20091001, end: 20111201
  2. KEPPRA [Suspect]
     Route: 048

REACTIONS (5)
  - COMA [None]
  - COGNITIVE DISORDER [None]
  - PROTHROMBIN TIME SHORTENED [None]
  - HYPERAMMONAEMIA [None]
  - PSYCHOMOTOR RETARDATION [None]
